FAERS Safety Report 21762975 (Version 1)
Quarter: 2022Q4

REPORT INFORMATION
  Report Type: Spontaneous
  Country: US (occurrence: None)
  Receive Date: 20221220
  Receipt Date: 20221220
  Transmission Date: 20230112
  Serious: Yes (Hospitalization)
  Sender: FDA-Public Use
  Company Number: None

PATIENT
  Age: 89 Year
  Sex: Female
  Weight: 69.4 kg

DRUGS (11)
  1. IBRANCE [Suspect]
     Active Substance: PALBOCICLIB
     Indication: Breast cancer female
     Dosage: FREQUENCY : DAILY;?
     Route: 048
  2. ASPIRIN [Concomitant]
     Active Substance: ASPIRIN
  3. ATORVASTATIN [Concomitant]
     Active Substance: ATORVASTATIN
  4. CALCIUM\MAGNESIUM [Concomitant]
     Active Substance: CALCIUM\MAGNESIUM
  5. CARVEDILOL [Concomitant]
     Active Substance: CARVEDILOL
  6. FISH OIL [Concomitant]
     Active Substance: FISH OIL
  7. ELIQUIS [Concomitant]
     Active Substance: APIXABAN
  8. FEMARA [Suspect]
     Active Substance: LETROZOLE
  9. LISINOPRIL [Concomitant]
     Active Substance: LISINOPRIL
  10. TYLENOL [Concomitant]
     Active Substance: ACETAMINOPHEN
  11. XGEVA [Concomitant]
     Active Substance: DENOSUMAB

REACTIONS (4)
  - White blood cell count decreased [None]
  - Therapy interrupted [None]
  - Asthenia [None]
  - Dizziness [None]

NARRATIVE: CASE EVENT DATE: 20221216
